FAERS Safety Report 12835891 (Version 2)
Quarter: 2025Q3

REPORT INFORMATION
  Report Type: Spontaneous
  Country: AU (occurrence: AU)
  Receive Date: 20161011
  Receipt Date: 20250925
  Transmission Date: 20251020
  Serious: Yes (Disabling, Other)
  Sender: SUNOVION
  Company Number: AU-DSPHARMA-2016DSP000713AA

PATIENT
  Age: 3 Decade
  Sex: Female

DRUGS (4)
  1. LATUDA [Suspect]
     Active Substance: LURASIDONE HYDROCHLORIDE
  2. SEROQUEL [Concomitant]
     Active Substance: QUETIAPINE FUMARATE
  3. BENZTROPINE MESYLATE [Concomitant]
     Active Substance: BENZTROPINE MESYLATE
  4. INVEGA [Concomitant]
     Active Substance: PALIPERIDONE

REACTIONS (4)
  - Mental impairment [Unknown]
  - Abnormal behaviour [Unknown]
  - Sedation complication [Unknown]
  - Dysarthria [Unknown]
